FAERS Safety Report 10263467 (Version 4)
Quarter: 2014Q3

REPORT INFORMATION
  Report Type: Spontaneous
  Country: RU (occurrence: RU)
  Receive Date: 20140626
  Receipt Date: 20140729
  Transmission Date: 20150326
  Serious: Yes (Hospitalization, Disabling)
  Sender: FDA-Public Use
  Company Number: RU-BIOMARINAP-RU-2014-103562

PATIENT
  Age: 22 Year
  Sex: Female
  Weight: 40 kg

DRUGS (2)
  1. NAGLAZYME [Suspect]
     Active Substance: GALSULFASE
     Indication: MUCOPOLYSACCHARIDOSIS VI
     Dosage: 40 ML, QW
     Route: 041
     Dates: start: 20140623
  2. NAGLAZYME [Suspect]
     Active Substance: GALSULFASE
     Dosage: 30 ML, QW
     Route: 041
     Dates: start: 201108

REACTIONS (5)
  - Quadriplegia [Unknown]
  - Fall [Unknown]
  - Cervical spinal stenosis [Not Recovered/Not Resolved]
  - Epilepsy [Unknown]
  - Sensory loss [Unknown]

NARRATIVE: CASE EVENT DATE: 20140623
